FAERS Safety Report 4460193-7 (Version None)
Quarter: 2004Q3

REPORT INFORMATION
  Report Type: 
  Country: None (occurrence: None)
  Receive Date: 20040928
  Receipt Date: 20040121
  Transmission Date: 20050211
  Serious: Yes (Hospitalization)
  Sender: FDA-Public Use
  Company Number: US-GLAXOSMITHKLINE-A0494504A

PATIENT
  Sex: Female

DRUGS (2)
  1. SEREVENT [Suspect]
     Indication: ILL-DEFINED DISORDER
     Dosage: 1PUFF UNKNOWN
     Route: 055
     Dates: start: 20031101
  2. UNSPECIFIED MEDICATION [Concomitant]

REACTIONS (3)
  - BREAST PAIN [None]
  - HYPERTROPHY BREAST [None]
  - PNEUMONIA [None]
